FAERS Safety Report 9316473 (Version 1)
Quarter: 2013Q2

REPORT INFORMATION
  Report Type: Spontaneous
  Country: CH (occurrence: CH)
  Receive Date: 20130530
  Receipt Date: 20130530
  Transmission Date: 20140414
  Serious: Yes (Other)
  Sender: FDA-Public Use
  Company Number: CH-ACCORD-017840

PATIENT
  Age: 69 Year
  Sex: Female

DRUGS (2)
  1. LETROZOLE [Suspect]
     Indication: BREAST CANCER METASTATIC
  2. PRAVASTATIN [Concomitant]

REACTIONS (1)
  - Leukocytoclastic vasculitis [Recovering/Resolving]
